FAERS Safety Report 10275868 (Version 1)
Quarter: 2014Q3

REPORT INFORMATION
  Report Type: Spontaneous
  Country: US (occurrence: US)
  Receive Date: 20140703
  Receipt Date: 20140703
  Transmission Date: 20150326
  Serious: Yes (Other)
  Sender: FDA-Public Use
  Company Number: US-PFIZER INC-2014182823

PATIENT
  Age: 49 Year
  Sex: Female
  Weight: 73.02 kg

DRUGS (1)
  1. EFFEXOR XR [Suspect]
     Active Substance: VENLAFAXINE HYDROCHLORIDE
     Indication: ANTIDEPRESSANT THERAPY
     Dosage: 75 MG, 1X/DAY
     Route: 048
     Dates: start: 2013, end: 201403

REACTIONS (4)
  - Suicide attempt [Unknown]
  - Mood swings [Unknown]
  - Platelet count increased [Unknown]
  - Depression [Unknown]

NARRATIVE: CASE EVENT DATE: 201403
